FAERS Safety Report 9659901 (Version 5)
Quarter: 2014Q3

REPORT INFORMATION
  Report Type: Report from Study
  Country: JP (occurrence: JP)
  Receive Date: 20131031
  Receipt Date: 20140729
  Transmission Date: 20150326
  Serious: Yes (Life-Threatening, Hospitalization)
  Sender: FDA-Public Use
  Company Number: JP-PFIZER INC-2013242823

PATIENT
  Age: 71 Year
  Sex: Male
  Weight: 53.7 kg

DRUGS (1)
  1. XALKORI [Suspect]
     Active Substance: CRIZOTINIB
     Indication: NON-SMALL CELL LUNG CANCER
     Dosage: 250 MG, 2X/DAY
     Route: 048
     Dates: start: 20130509, end: 20130524

REACTIONS (7)
  - Decreased appetite [Recovering/Resolving]
  - Ileus [Recovering/Resolving]
  - Peripheral circulatory failure [Recovering/Resolving]
  - Disseminated intravascular coagulation [Recovering/Resolving]
  - Hypoalbuminaemia [Recovering/Resolving]
  - Small intestinal perforation [Recovering/Resolving]
  - Peritonitis [Recovering/Resolving]

NARRATIVE: CASE EVENT DATE: 20130510
